FAERS Safety Report 20350966 (Version 1)
Quarter: 2022Q1

REPORT INFORMATION
  Report Type: Spontaneous
  Country: US (occurrence: US)
  Receive Date: 20220119
  Receipt Date: 20220119
  Transmission Date: 20220423
  Serious: Yes (Hospitalization)
  Sender: FDA-Public Use
  Company Number: US-MALLINCKRODT-T202200192

PATIENT
  Age: 65 Year
  Sex: Female

DRUGS (1)
  1. H.P. ACTHAR [Suspect]
     Active Substance: CORTICOTROPIN
     Indication: Polymyositis
     Dosage: 80 UNITS (1 MILLILITER), TWICE A WEEK
     Route: 058

REACTIONS (1)
  - Surgery [Not Recovered/Not Resolved]

NARRATIVE: CASE EVENT DATE: 20220106
